FAERS Safety Report 8226344-3 (Version None)
Quarter: 2012Q1

REPORT INFORMATION
  Report Type: 
  Country: None (occurrence: None)
  Receive Date: 20120321
  Receipt Date: 20120314
  Transmission Date: 20120608
  Serious: Yes (Other)
  Sender: FDA-Public Use
  Company Number: JP-VERTEX PHARMACEUTICALS INC.-AE-2012-003955

PATIENT
  Age: 69 Year
  Sex: Female

DRUGS (12)
  1. WARFARIN SODIUM [Concomitant]
     Route: 048
     Dates: end: 20120206
  2. NEO-MERCAZOLE TAB [Concomitant]
     Route: 048
  3. LOXOPROFEN [Concomitant]
     Route: 048
     Dates: start: 20120123, end: 20120220
  4. VERAPAMIL HCL [Concomitant]
     Route: 048
  5. LANIRAPID [Concomitant]
     Route: 048
     Dates: end: 20120131
  6. PEG-INTRON [Concomitant]
     Indication: HEPATITIS C
     Route: 058
     Dates: start: 20120124
  7. ZOLPIDEM [Concomitant]
     Route: 048
  8. MUCOSTA [Concomitant]
     Route: 048
     Dates: start: 20120123, end: 20120220
  9. REBETOL [Concomitant]
     Indication: HEPATITIS C
     Route: 048
     Dates: start: 20120124, end: 20120202
  10. TELAVIC (TELAPREVIR) [Suspect]
     Indication: HEPATITIS C
     Route: 048
     Dates: start: 20120124
  11. REBETOL [Concomitant]
     Route: 048
     Dates: start: 20120203, end: 20120214
  12. REBETOL [Concomitant]
     Route: 048
     Dates: start: 20120215

REACTIONS (1)
  - CARDIAC FAILURE [None]
